FAERS Safety Report 6243700-3 (Version None)
Quarter: 2009Q2

REPORT INFORMATION
  Report Type: 
  Country: None (occurrence: None)
  Receive Date: 20090618
  Receipt Date: 20090112
  Transmission Date: 20091009
  Serious: Yes (Other)
  Sender: FDA-Public Use
  Company Number: WAES 0901USA01293

PATIENT
  Sex: Male
  Weight: 111.5849 kg

DRUGS (2)
  1. COZAAR [Suspect]
     Indication: BLOOD PRESSURE
     Dosage: 25 MG/DAILY/PO; 100 MG/DAILY/PO; 50 MG/DAILY/PO
     Route: 048
     Dates: start: 20070301
  2. COZAAR [Suspect]
     Indication: BLOOD PRESSURE
     Dosage: 25 MG/DAILY/PO; 100 MG/DAILY/PO; 50 MG/DAILY/PO
     Route: 048
     Dates: start: 20080901

REACTIONS (2)
  - BLOOD POTASSIUM INCREASED [None]
  - RENAL FAILURE [None]
